FAERS Safety Report 14890396 (Version 30)
Quarter: 2020Q1

REPORT INFORMATION
  Report Type: Spontaneous
  Country: US (occurrence: US)
  Receive Date: 20180514
  Receipt Date: 20200226
  Transmission Date: 20200409
  Serious: Yes (Other)
  Sender: FDA-Public Use
  Company Number: US-PFIZER INC-2018195222

PATIENT
  Age: 71 Year
  Sex: Female
  Weight: 69 kg

DRUGS (13)
  1. IBRANCE [Suspect]
     Active Substance: PALBOCICLIB
     Dosage: 125 MG, CYCLIC (DAYS 1-21 EVERY 28 DAYS/DAILY X 21 DAYS, 7 DAYS OFF)
     Route: 048
  2. IBRANCE [Suspect]
     Active Substance: PALBOCICLIB
     Dosage: 100 MG, CYCLIC (ONCE DAILY FOR 21 DAYS, THEN 7 DAYS OFF)
     Route: 048
     Dates: start: 20180518, end: 20180618
  3. BENADRYL [Suspect]
     Active Substance: DIPHENHYDRAMINE HYDROCHLORIDE
     Dosage: UNK
  4. IBRANCE [Suspect]
     Active Substance: PALBOCICLIB
     Dosage: 100 MG, CYCLIC (ONCE DAILY FOR 21 DAYS, THEN 7 DAYS OFF/DAY 1-21 EVERY 28 DAYS)
     Route: 048
     Dates: start: 20180427
  5. IBRANCE [Suspect]
     Active Substance: PALBOCICLIB
     Dosage: 125 MG, CYCLIC (DAILY X 21  DAYS, EVERY 28 DAYS)
     Route: 048
     Dates: start: 20190427
  6. IBRANCE [Suspect]
     Active Substance: PALBOCICLIB
     Indication: BREAST CANCER METASTATIC
     Dosage: 100 MG, CYCLIC (ONCE DAILY FOR 21 DAYS, THEN 7 DAYS OFF)
     Route: 048
     Dates: start: 20180424, end: 20180426
  7. IBRANCE [Suspect]
     Active Substance: PALBOCICLIB
     Dosage: 125 MG, CYCLIC (1 DAILY FOR 21 DAYS, THEN 7 DAYS OFF)
     Route: 048
     Dates: start: 20180704, end: 201807
  8. IBRANCE [Suspect]
     Active Substance: PALBOCICLIB
     Dosage: 125 MG, CYCLIC (D1-21 Q28D)
     Route: 048
     Dates: start: 20180427
  9. IBRANCE [Suspect]
     Active Substance: PALBOCICLIB
     Dosage: 125 MG, CYCLIC (1 CAPSULE BY MOUTH ONCE DAILY WITH FOOD FOR 21 DAYS, 7DAYS OFF)
     Route: 048
     Dates: start: 20181009
  10. PREDNISONE. [Suspect]
     Active Substance: PREDNISONE
     Dosage: UNK
  11. IBRANCE [Suspect]
     Active Substance: PALBOCICLIB
     Dosage: 125 MG, CYCLIC (1 DAILY FOR 21 DAYS, THEN 7 DAYS OFF)
     Route: 048
     Dates: start: 20190522, end: 20190711
  12. IBRANCE [Suspect]
     Active Substance: PALBOCICLIB
     Dosage: 100 MG, CYCLIC (ONCE DAILY FOR 21 DAYS, THEN 7 DAYS OFF)
     Route: 048
     Dates: start: 20180719
  13. XGEVA [Concomitant]
     Active Substance: DENOSUMAB
     Dosage: UNK

REACTIONS (72)
  - Dizziness [Unknown]
  - Blood pressure increased [Unknown]
  - Muscle spasms [Unknown]
  - Pain [Unknown]
  - Defaecation urgency [Unknown]
  - Groin pain [Unknown]
  - Gastrointestinal disorder [Unknown]
  - Diarrhoea [Unknown]
  - Pain in jaw [Not Recovered/Not Resolved]
  - Feeling cold [Unknown]
  - Nodule [Unknown]
  - Decreased appetite [Unknown]
  - Exostosis [Unknown]
  - Urinary incontinence [Unknown]
  - Osteonecrosis of jaw [Unknown]
  - Pruritus [Not Recovered/Not Resolved]
  - Epistaxis [Unknown]
  - Alveolar osteitis [Unknown]
  - Toothache [Unknown]
  - Nasal congestion [Unknown]
  - Restless legs syndrome [Unknown]
  - Spinal disorder [Unknown]
  - Haematuria [Unknown]
  - White blood cell count decreased [Unknown]
  - Musculoskeletal pain [Not Recovered/Not Resolved]
  - Trismus [Unknown]
  - Headache [Unknown]
  - Road traffic accident [Unknown]
  - Dry skin [Unknown]
  - Lymphadenopathy [Unknown]
  - Skin swelling [Unknown]
  - Weight decreased [Unknown]
  - Eye disorder [Unknown]
  - Pain of skin [Unknown]
  - Stomatitis [Unknown]
  - Abdominal discomfort [Unknown]
  - Arthralgia [Unknown]
  - Red blood cell count decreased [Unknown]
  - Post procedural discharge [Unknown]
  - Oropharyngeal pain [Unknown]
  - Rhinorrhoea [Not Recovered/Not Resolved]
  - Sciatica [Unknown]
  - Chest pain [Unknown]
  - Bone pain [Not Recovered/Not Resolved]
  - Hair disorder [Unknown]
  - Thyroid mass [Unknown]
  - Abdominal pain [Unknown]
  - Cyst [Not Recovered/Not Resolved]
  - Mobility decreased [Unknown]
  - Musculoskeletal chest pain [Unknown]
  - Skin haemorrhage [Unknown]
  - Alopecia [Unknown]
  - Peripheral swelling [Unknown]
  - Lethargy [Unknown]
  - Haemorrhage [Unknown]
  - Dysuria [Unknown]
  - Asthenia [Unknown]
  - Muscular weakness [Unknown]
  - Blood count abnormal [Unknown]
  - Hypotension [Unknown]
  - Cough [Unknown]
  - Sneezing [Unknown]
  - Hiccups [Unknown]
  - Haematochezia [Unknown]
  - Osteomyelitis [Unknown]
  - Neoplasm progression [Unknown]
  - Back pain [Not Recovered/Not Resolved]
  - Nausea [Not Recovered/Not Resolved]
  - Constipation [Unknown]
  - Pain in extremity [Unknown]
  - Osteoporosis [Unknown]
  - Cystitis [Unknown]

NARRATIVE: CASE EVENT DATE: 2018
